FAERS Safety Report 7124184-X (Version None)
Quarter: 2010Q4

REPORT INFORMATION
  Report Type: 
  Country: None (occurrence: None)
  Receive Date: 20101126
  Receipt Date: 20101117
  Transmission Date: 20110411
  Serious: Yes (Other)
  Sender: FDA-Public Use
  Company Number: JP-BRISTOL-MYERS SQUIBB COMPANY-15397987

PATIENT
  Age: 80 Year
  Sex: Male

DRUGS (2)
  1. BRIPLATIN [Suspect]
     Indication: GASTRIC CANCER
     Route: 041
  2. TEGAFUR + GIMERACIL + OTERACIL POTASSIUM [Suspect]
     Indication: GASTRIC CANCER
     Route: 048

REACTIONS (3)
  - BILE DUCT STONE [None]
  - CHOLANGITIS [None]
  - SEPSIS [None]
